FAERS Safety Report 8277588-6 (Version None)
Quarter: 2012Q1

REPORT INFORMATION
  Report Type: 
  Country: None (occurrence: None)
  Receive Date: 20120312
  Receipt Date: 20120123
  Transmission Date: 20120608
  Serious: No
  Sender: FDA-Public Use
  Company Number: 2012SP004231

PATIENT
  Sex: Female

DRUGS (1)
  1. SAPHRIS [Suspect]
     Indication: PRODUCT USED FOR UNKNOWN INDICATION

REACTIONS (5)
  - RESTLESSNESS [None]
  - ANXIETY [None]
  - TONGUE ULCERATION [None]
  - STRESS [None]
  - DISTURBANCE IN ATTENTION [None]
